FAERS Safety Report 8107740-1 (Version None)
Quarter: 2012Q1

REPORT INFORMATION
  Report Type: 
  Country: None (occurrence: None)
  Receive Date: 20120202
  Receipt Date: 20120130
  Transmission Date: 20120608
  Serious: Yes (Other)
  Sender: FDA-Public Use
  Company Number: US-JNJFOC-20110408040

PATIENT
  Age: 20 Year
  Sex: Male

DRUGS (1)
  1. NICOTINE [Suspect]
     Indication: SMOKING CESSATION THERAPY
     Route: 048
     Dates: start: 20110408, end: 20110408

REACTIONS (6)
  - HYPERSENSITIVITY [None]
  - THROAT IRRITATION [None]
  - HYPERHIDROSIS [None]
  - DYSPNOEA [None]
  - PHARYNGEAL OEDEMA [None]
  - FEELING HOT [None]
